FAERS Safety Report 18886077 (Version 1)
Quarter: 2021Q1

REPORT INFORMATION
  Report Type: Spontaneous
  Country: US (occurrence: US)
  Receive Date: 20210212
  Receipt Date: 20210212
  Transmission Date: 20210420
  Serious: Yes (Hospitalization)
  Sender: FDA-Public Use
  Company Number: None

PATIENT
  Age: 69 Year
  Sex: Male
  Weight: 83.2 kg

DRUGS (19)
  1. MAGNESIUM OXIDE. [Concomitant]
     Active Substance: MAGNESIUM OXIDE
  2. POTASSIUM CHLORIDE. [Concomitant]
     Active Substance: POTASSIUM CHLORIDE
  3. CLOPIDOGREL [Concomitant]
     Active Substance: CLOPIDOGREL BISULFATE
  4. METFORMIN [Concomitant]
     Active Substance: METFORMIN HYDROCHLORIDE
  5. OMEPRAZOLE. [Concomitant]
     Active Substance: OMEPRAZOLE
  6. DOCUSATE [Concomitant]
     Active Substance: DOCUSATE
  7. DULOXETINE. [Concomitant]
     Active Substance: DULOXETINE
  8. WARFARIN [Concomitant]
     Active Substance: WARFARIN
  9. ALLOPURINOL. [Concomitant]
     Active Substance: ALLOPURINOL
  10. ATORVASTATIN [Concomitant]
     Active Substance: ATORVASTATIN
  11. GABAPENTIN. [Concomitant]
     Active Substance: GABAPENTIN
  12. BAMLANIVIMAB FOR EUA [Suspect]
     Active Substance: BAMLANIVIMAB
     Indication: COVID-19
     Route: 042
     Dates: start: 20210108, end: 20210108
  13. ACYCLOVIR. [Concomitant]
     Active Substance: ACYCLOVIR
  14. LORATIDINE [Concomitant]
     Active Substance: LORATADINE
  15. TORSEMIDE. [Concomitant]
     Active Substance: TORSEMIDE
  16. METOPROLOL. [Concomitant]
     Active Substance: METOPROLOL
  17. SPIRONOLACTONE. [Concomitant]
     Active Substance: SPIRONOLACTONE
  18. TAMSULOSIN [Concomitant]
     Active Substance: TAMSULOSIN
  19. VENTOCLAX [Concomitant]

REACTIONS (5)
  - COVID-19 pneumonia [None]
  - Respiratory failure [None]
  - Atrial fibrillation [None]
  - Immunodeficiency [None]
  - Hyperglycaemia [None]

NARRATIVE: CASE EVENT DATE: 20210118
